FAERS Safety Report 6894533-6 (Version None)
Quarter: 2010Q3

REPORT INFORMATION
  Report Type: 
  Country: None (occurrence: None)
  Receive Date: 20100728
  Receipt Date: 20100720
  Transmission Date: 20110219
  Serious: Yes (Hospitalization)
  Sender: FDA-Public Use
  Company Number: 2010SP040154

PATIENT
  Age: 59 Year
  Sex: Male

DRUGS (2)
  1. PEG-INTRON [Suspect]
     Indication: HEPATITIS C
     Dosage: 100 MCG;QW;SC
     Route: 058
     Dates: start: 20100210
  2. REBETOL [Suspect]
     Indication: HEPATITIS C
     Dosage: 400 MG;QD;PO
     Route: 048
     Dates: start: 20100210

REACTIONS (1)
  - ILEUS [None]
